FAERS Safety Report 7381754-1 (Version None)
Quarter: 2011Q1

REPORT INFORMATION
  Report Type: 
  Country: None (occurrence: None)
  Receive Date: 20110329
  Receipt Date: 20110324
  Transmission Date: 20110831
  Serious: No
  Sender: FDA-Public Use
  Company Number: US-TEVA-273323USA

PATIENT
  Sex: Female
  Weight: 62.198 kg

DRUGS (2)
  1. PREVACID [Concomitant]
     Indication: DYSPEPSIA
     Dates: start: 20101201
  2. PLAN B ONE-STEP [Suspect]
     Indication: POST COITAL CONTRACEPTION
     Route: 048
     Dates: start: 20110319, end: 20110319

REACTIONS (2)
  - VAGINAL DISCHARGE [None]
  - FUNGAL INFECTION [None]
